FAERS Safety Report 16898599 (Version 2)
Quarter: 2019Q4

REPORT INFORMATION
  Report Type: Spontaneous
  Country: ES (occurrence: ES)
  Receive Date: 20191009
  Receipt Date: 20191011
  Transmission Date: 20200122
  Serious: Yes (Death, Hospitalization, Other)
  Sender: FDA-Public Use
  Company Number: ES-PFIZER INC-2019427058

PATIENT
  Age: 67 Year
  Sex: Male
  Weight: 66 kg

DRUGS (2)
  1. OXALIPLATIN. [Suspect]
     Active Substance: OXALIPLATIN
     Indication: ADENOCARCINOMA OF COLON
     Dosage: UNK
     Route: 065
  2. CAPECITABINE. [Suspect]
     Active Substance: CAPECITABINE
     Indication: ADENOCARCINOMA OF COLON
     Dosage: UNK
     Route: 065

REACTIONS (19)
  - Multiple organ dysfunction syndrome [Fatal]
  - General physical health deterioration [Unknown]
  - Haemorrhage [Unknown]
  - Rectal haemorrhage [Unknown]
  - Gastrointestinal haemorrhage [Unknown]
  - Haematemesis [Unknown]
  - Diarrhoea [Unknown]
  - Oesophagitis [Unknown]
  - Dehydration [Unknown]
  - Hypovolaemic shock [Fatal]
  - Anaemia [Unknown]
  - Oesophageal haemorrhage [Unknown]
  - Abdominal distension [Unknown]
  - Enteritis [Unknown]
  - Acute kidney injury [Unknown]
  - Asthenia [Unknown]
  - Somnolence [Unknown]
  - Hyperaemia [Unknown]
  - Vomiting [Unknown]
